FAERS Safety Report 5161514-2 (Version None)
Quarter: 2006Q4

REPORT INFORMATION
  Report Type: 
  Country: None (occurrence: None)
  Receive Date: 20061130
  Receipt Date: 20060828
  Transmission Date: 20070319
  Serious: No
  Sender: FDA-Public Use
  Company Number: US-GLAXOSMITHKLINE-A0618267A

PATIENT
  Age: 26 Year
  Sex: Female

DRUGS (2)
  1. WELLBUTRIN XL [Suspect]
     Indication: DEPRESSION
     Dosage: 300MG PER DAY
     Route: 048
     Dates: start: 20060801
  2. LEXAPRO [Concomitant]

REACTIONS (4)
  - HYPERTENSION [None]
  - PYREXIA [None]
  - RASH GENERALISED [None]
  - WEIGHT DECREASED [None]
